FAERS Safety Report 5081052-5 (Version None)
Quarter: 2006Q3

REPORT INFORMATION
  Report Type: 
  Country: None (occurrence: None)
  Receive Date: 20060810
  Receipt Date: 20060419
  Transmission Date: 20061208
  Serious: Yes (Other)
  Sender: FDA-Public Use
  Company Number: CHPA2006US04006

PATIENT
  Age: 82 Year
  Sex: Female
  Weight: 65.8 kg

DRUGS (2)
  1. EXCEDRIN (MIGRAINE) [Suspect]
     Indication: SCIATICA
     Dosage: ORAL
     Route: 048
  2. EXCEDRIN (MIGRAINE) [Suspect]
     Indication: SCIATICA
     Dosage: ORAL
     Route: 048

REACTIONS (2)
  - DRUG ABUSER [None]
  - DRUG INEFFECTIVE [None]
